FAERS Safety Report 23488953 (Version 1)
Quarter: 2024Q1

REPORT INFORMATION
  Report Type: Spontaneous
  Country: US (occurrence: US)
  Receive Date: 20240206
  Receipt Date: 20240206
  Transmission Date: 20240410
  Serious: No
  Sender: FDA-Public Use
  Company Number: US-GALDERMA-US2023020588

PATIENT

DRUGS (2)
  1. TWYNEO [Suspect]
     Active Substance: BENZOYL PEROXIDE\TRETINOIN
     Indication: Product used for unknown indication
     Dosage: 1 DOSAGE FORM, ONCE PER WEEK
     Route: 061
  2. TWYNEO [Suspect]
     Active Substance: BENZOYL PEROXIDE\TRETINOIN
     Dosage: 1 DOSAGE FORM, TWICE PER WEEK
     Route: 061

REACTIONS (2)
  - Inappropriate schedule of product administration [Recovered/Resolved]
  - Underdose [Recovered/Resolved]
